FAERS Safety Report 5877129-4 (Version None)
Quarter: 2008Q3

REPORT INFORMATION
  Report Type: 
  Country: None (occurrence: None)
  Receive Date: 20080910
  Receipt Date: 20080829
  Transmission Date: 20090109
  Serious: Yes (Other)
  Sender: FDA-Public Use
  Company Number: AR-PFIZER INC-2008072911

PATIENT
  Age: 77 Year
  Sex: Female

DRUGS (7)
  1. XALATAN [Suspect]
     Indication: INTRAOCULAR PRESSURE TEST
     Dosage: TEXT:1 DROP ON EACH EYE ONCE A DAY
     Route: 047
  2. DORZOLAMIDE HYDROCHLORIDE [Concomitant]
  3. ANTIDEPRESSANTS [Concomitant]
  4. DIURETICS [Concomitant]
  5. LEVOTHYROXINE SODIUM [Concomitant]
  6. RIVOTRIL [Concomitant]
  7. HYZAAR [Concomitant]

REACTIONS (2)
  - INTRAOCULAR PRESSURE INCREASED [None]
  - OCULAR DISCOMFORT [None]
